FAERS Safety Report 6567423-6 (Version None)
Quarter: 2010Q1

REPORT INFORMATION
  Report Type: 
  Country: None (occurrence: None)
  Receive Date: 20100128
  Receipt Date: 20100120
  Transmission Date: 20100710
  Serious: Yes (Hospitalization)
  Sender: FDA-Public Use
  Company Number: 2009SP043068

PATIENT
  Age: 59 Year
  Sex: Male

DRUGS (4)
  1. TEMODAR [Suspect]
     Indication: BRAIN NEOPLASM
     Dosage: 1 DF, QD; PO
     Route: 048
     Dates: start: 20091101, end: 20091201
  2. DECADRON [Concomitant]
  3. CITALOPRAM [Concomitant]
  4. PHENERGAN HCL [Concomitant]

REACTIONS (2)
  - PULMONARY EMBOLISM [None]
  - THROMBOSIS [None]
